FAERS Safety Report 6771745-3 (Version None)
Quarter: 2010Q2

REPORT INFORMATION
  Report Type: 
  Country: None (occurrence: None)
  Receive Date: 20100616
  Receipt Date: 20091224
  Transmission Date: 20101027
  Serious: No
  Sender: FDA-Public Use
  Company Number: US-ASTRAZENECA-2009SE33559

PATIENT
  Sex: Female

DRUGS (4)
  1. ATACAND [Suspect]
     Route: 048
  2. LISINOPRIL [Concomitant]
  3. LASIX [Concomitant]
  4. METOPROLOL [Concomitant]

REACTIONS (4)
  - CONFUSIONAL STATE [None]
  - DRUG DOSE OMISSION [None]
  - INSOMNIA [None]
  - RESPIRATORY DISORDER [None]
